FAERS Safety Report 6105472-2 (Version None)
Quarter: 2009Q1

REPORT INFORMATION
  Report Type: 
  Country: None (occurrence: None)
  Receive Date: 20090226
  Receipt Date: 20090226
  Transmission Date: 20090719
  Serious: Yes (Other)
  Sender: FDA-Public Use
  Company Number: None

PATIENT
  Sex: Female

DRUGS (1)
  1. BENEFIBER UNKNOWN (NCH) (UNKNOWN) UNKNOWN [Suspect]

REACTIONS (2)
  - CHEST DISCOMFORT [None]
  - TACHYCARDIA [None]
